FAERS Safety Report 11687208 (Version 1)
Quarter: 2015Q4

REPORT INFORMATION
  Report Type: Spontaneous
  Country: GB (occurrence: GB)
  Receive Date: 20151030
  Receipt Date: 20151030
  Transmission Date: 20160304
  Serious: Yes (Other)
  Sender: FDA-Public Use
  Company Number: GB-NOVOPROD-468158

PATIENT
  Age: 55 Year
  Sex: Male
  Weight: 114 kg

DRUGS (6)
  1. VICTOZA [Suspect]
     Active Substance: LIRAGLUTIDE
     Indication: DIABETES MELLITUS
     Dosage: 0.6 TO 1.2 MG
     Route: 058
     Dates: start: 20150828, end: 20151008
  2. SIMVASTATIN. [Concomitant]
     Active Substance: SIMVASTATIN
  3. METFORMIN [Concomitant]
     Active Substance: METFORMIN HYDROCHLORIDE
  4. VICTOZA [Suspect]
     Active Substance: LIRAGLUTIDE
     Dosage: 0.6 TO 1.2 MG
     Route: 058
  5. ATENOLOL. [Concomitant]
     Active Substance: ATENOLOL
  6. FLUOXETINE [Concomitant]
     Active Substance: FLUOXETINE HYDROCHLORIDE

REACTIONS (8)
  - Headache [Recovering/Resolving]
  - Nausea [Recovering/Resolving]
  - Abnormal loss of weight [Recovered/Resolved]
  - Malaise [Recovering/Resolving]
  - Hypoglycaemia [Recovering/Resolving]
  - Food aversion [Recovering/Resolving]
  - Abdominal distension [Recovering/Resolving]
  - Tinnitus [Recovered/Resolved]

NARRATIVE: CASE EVENT DATE: 201508
